FAERS Safety Report 22120463 (Version 1)
Quarter: 2023Q1

REPORT INFORMATION
  Report Type: Spontaneous
  Country: US (occurrence: US)
  Receive Date: 20230321
  Receipt Date: 20230321
  Transmission Date: 20230418
  Serious: No
  Sender: FDA-Public Use
  Company Number: US-AMNEAL PHARMACEUTICALS-2022-AMRX-03690

PATIENT
  Age: 17 Year
  Sex: Female
  Weight: 51.701 kg

DRUGS (5)
  1. ETHINYL ESTRADIOL\NORELGESTROMIN [Suspect]
     Active Substance: ETHINYL ESTRADIOL\NORELGESTROMIN
     Indication: Hormone therapy
     Dosage: UNK
     Route: 062
     Dates: start: 20221105
  2. ETHINYL ESTRADIOL\NORELGESTROMIN [Suspect]
     Active Substance: ETHINYL ESTRADIOL\NORELGESTROMIN
     Dosage: REMOVE PREVIOUS PATCH AND APPLY A NEW ONE ONCE WEEK FOR 3 WEEKS FOLLOWED BY ONE WEEK OFF THEN RESUME
     Route: 062
     Dates: start: 20221128
  3. PRISTIQ EXTENDED-RELEASE [Concomitant]
     Active Substance: DESVENLAFAXINE SUCCINATE
     Indication: Product used for unknown indication
     Dosage: 100 MG, QD
     Route: 048
  4. SEROQUEL [Concomitant]
     Active Substance: QUETIAPINE FUMARATE
     Indication: Product used for unknown indication
     Dosage: 100 MG, EVERY NIGHT AT BED TIME
     Route: 048
  5. CLONOPIN [Concomitant]
     Active Substance: CLONAZEPAM
     Indication: Product used for unknown indication
     Dosage: 0.5 MILLIGRAM, BID
     Route: 048

REACTIONS (6)
  - Hormone level abnormal [Unknown]
  - Menstrual disorder [Unknown]
  - Mood altered [Unknown]
  - Product adhesion issue [Unknown]
  - Withdrawal bleed [Unknown]
  - Product use issue [Unknown]

NARRATIVE: CASE EVENT DATE: 20221121
